FAERS Safety Report 8428092-3 (Version None)
Quarter: 2012Q2

REPORT INFORMATION
  Report Type: 
  Country: None (occurrence: None)
  Receive Date: 20120611
  Receipt Date: 20120315
  Transmission Date: 20120825
  Serious: No
  Sender: FDA-Public Use
  Company Number: US-ASTRAZENECA-2012SE18129

PATIENT
  Age: 56 Year
  Sex: Female

DRUGS (11)
  1. PENICILLIN V POTASSIUM [Concomitant]
  2. NEXIUM [Concomitant]
     Route: 048
  3. ZOCOR [Concomitant]
  4. NASONEX [Concomitant]
  5. NORVASC [Concomitant]
  6. PROVENTIL [Concomitant]
     Dosage: INH THREE PUFFS
  7. HYDROCHLOROTHIAZIDE [Concomitant]
  8. VALTREX [Concomitant]
  9. RHINOCORT [Suspect]
     Route: 045
  10. PERCOCET [Concomitant]
     Dosage: 7.5/325 MG
  11. FLEXERIL [Concomitant]

REACTIONS (2)
  - DRUG HYPERSENSITIVITY [None]
  - HEADACHE [None]
